FAERS Safety Report 25190853 (Version 2)
Quarter: 2025Q2

REPORT INFORMATION
  Report Type: Report from Study
  Country: US (occurrence: US)
  Receive Date: 20250411
  Receipt Date: 20250508
  Transmission Date: 20250716
  Serious: Yes (Other)
  Sender: ALEXION PHARMACEUTICALS
  Company Number: US-AstraZeneca-CH-00843644A

PATIENT

DRUGS (1)
  1. STRENSIQ [Suspect]
     Active Substance: ASFOTASE ALFA
     Indication: Hypophosphatasia
     Route: 065

REACTIONS (10)
  - Endocarditis [Unknown]
  - Pericarditis [Recovered/Resolved with Sequelae]
  - Injection site pain [Unknown]
  - Injection site erythema [Recovered/Resolved with Sequelae]
  - Foot fracture [Not Recovered/Not Resolved]
  - Skin laxity [Not Recovered/Not Resolved]
  - Skin discolouration [Unknown]
  - Costochondritis [Recovered/Resolved]
  - Anxiety [Unknown]
  - Injection site discolouration [Not Recovered/Not Resolved]
